FAERS Safety Report 4811439-4 (Version None)
Quarter: 2005Q4

REPORT INFORMATION
  Report Type: 
  Country: None (occurrence: None)
  Receive Date: 20051027
  Receipt Date: 20051020
  Transmission Date: 20060501
  Serious: Yes (Hospitalization)
  Sender: FDA-Public Use
  Company Number: US-BRISTOL-MYERS SQUIBB COMPANY-13158233

PATIENT
  Age: 82 Year
  Sex: Male

DRUGS (1)
  1. ERBITUX [Suspect]
     Route: 042
     Dates: start: 20050922, end: 20050922

REACTIONS (6)
  - BLOOD PRESSURE IMMEASURABLE [None]
  - COMA [None]
  - DYSPNOEA [None]
  - LETHARGY [None]
  - OXYGEN SATURATION IMMEASURABLE [None]
  - PULSE ABNORMAL [None]
